FAERS Safety Report 14306817 (Version 1)
Quarter: 2017Q4

REPORT INFORMATION
  Report Type: Spontaneous
  Country: FR (occurrence: FR)
  Receive Date: 20171220
  Receipt Date: 20171220
  Transmission Date: 20180321
  Serious: Yes (Hospitalization)
  Sender: FDA-Public Use
  Company Number: FR-ZYDUS-018430

PATIENT
  Age: 63 Year
  Sex: Male

DRUGS (2)
  1. GABAPENTIN. [Suspect]
     Active Substance: GABAPENTIN
     Indication: TONGUE MOVEMENT DISTURBANCE
     Dosage: 800 MG; QD
     Route: 065
  2. PIRIBEDIL/PIRIBEDIL MONOMETHANESULFONATE [Suspect]
     Active Substance: PIRIBEDIL MESYLATE
     Indication: PRODUCT USED FOR UNKNOWN INDICATION
     Dosage: 150 MG, QD
     Route: 048

REACTIONS (9)
  - Parkinson^s disease [Not Recovered/Not Resolved]
  - Nausea [Unknown]
  - Vomiting [Unknown]
  - Muscle rigidity [None]
  - Tremor [None]
  - Movement disorder [None]
  - Bradykinesia [None]
  - Resting tremor [None]
  - Drug ineffective for unapproved indication [Recovered/Resolved]

NARRATIVE: CASE EVENT DATE: 2015
